FAERS Safety Report 10711468 (Version 3)
Quarter: 2015Q3

REPORT INFORMATION
  Report Type: Report from Study
  Country: US (occurrence: US)
  Receive Date: 20150114
  Receipt Date: 20150720
  Transmission Date: 20151125
  Serious: No
  Sender: FDA-Public Use
  Company Number: US-GILEAD-2015-0130409

PATIENT
  Age: 61 Year
  Sex: Female

DRUGS (1)
  1. LEDIPASVIR/SOFOSBUVIR [Suspect]
     Active Substance: LEDIPASVIR\SOFOSBUVIR
     Indication: CHRONIC HEPATITIS C
     Dosage: 1 UNK, UNK
     Route: 048
     Dates: start: 20141210

REACTIONS (5)
  - Insomnia [Unknown]
  - Energy increased [Unknown]
  - Fatigue [Not Recovered/Not Resolved]
  - Hepatic pain [Unknown]
  - Asthma [Unknown]

NARRATIVE: CASE EVENT DATE: 201412
